FAERS Safety Report 7011936-X (Version None)
Quarter: 2010Q3

REPORT INFORMATION
  Report Type: 
  Country: None (occurrence: None)
  Receive Date: 20100924
  Receipt Date: 20100916
  Transmission Date: 20110219
  Serious: Yes (Hospitalization)
  Sender: FDA-Public Use
  Company Number: 2005BI002561

PATIENT
  Age: 29 Year
  Sex: Male
  Weight: 99 kg

DRUGS (4)
  1. AVONEX [Suspect]
     Indication: MULTIPLE SCLEROSIS
     Route: 030
     Dates: start: 20020101, end: 20030101
  2. AVONEX [Suspect]
     Route: 030
     Dates: start: 20030101, end: 20041001
  3. AVONEX [Suspect]
     Route: 030
     Dates: start: 20041001, end: 20050914
  4. IMMUNE GLOBULIN INTRAVENOUS (HUMAN) [Concomitant]
     Route: 042

REACTIONS (4)
  - COLITIS [None]
  - DECREASED APPETITE [None]
  - GASTROINTESTINAL HYPERMOTILITY [None]
  - PULMONARY EMBOLISM [None]
